FAERS Safety Report 8948551 (Version 1)
Quarter: 2012Q4

REPORT INFORMATION
  Report Type: Spontaneous
  Country: BR (occurrence: None)
  Receive Date: 20121123
  Receipt Date: 20121123
  Transmission Date: 20130627
  Serious: Yes (Other)
  Sender: FDA-Public Use
  Company Number: MPS1-1000826

PATIENT
  Sex: Male

DRUGS (1)
  1. ALDURAZYME [Suspect]
     Route: 042

REACTIONS (3)
  - Anaemia [None]
  - Opportunistic infection [None]
  - White blood cell count decreased [None]
